FAERS Safety Report 4508924-1 (Version None)
Quarter: 2004Q4

REPORT INFORMATION
  Report Type: 
  Country: None (occurrence: None)
  Receive Date: 20041123
  Receipt Date: 20040317
  Transmission Date: 20050328
  Serious: Yes (Life-Threatening, Hospitalization)
  Sender: FDA-Public Use
  Company Number: JP-GLAXOSMITHKLINE-B0327233A

PATIENT
  Age: 47 Year
  Sex: Female

DRUGS (12)
  1. ZOVIRAX [Suspect]
     Indication: HERPES ZOSTER
     Route: 042
     Dates: start: 20040311, end: 20040312
  2. CEFAMEZIN [Suspect]
     Indication: BRONCHITIS
     Dosage: .5G PER DAY
     Route: 042
     Dates: start: 20040312, end: 20040312
  3. DIALYSIS [Concomitant]
  4. PREDNISOLONE [Concomitant]
     Indication: SYSTEMIC LUPUS ERYTHEMATOSUS
     Dosage: 10MG PER DAY
     Route: 048
  5. ALLOPURINOL [Concomitant]
     Dosage: 100MG PER DAY
     Route: 048
  6. CIMETIDINE [Concomitant]
     Indication: GASTRIC ULCER
     Dosage: 900MG PER DAY
     Route: 048
  7. PRECIPITATED CALCIUM CARBONATE [Concomitant]
     Indication: BLOOD PHOSPHORUS INCREASED
     Dosage: 4500MG PER DAY
     Route: 048
     Dates: end: 20040312
  8. REBAMIPIDE [Concomitant]
     Indication: GASTRITIS
     Dosage: 300MG PER DAY
     Route: 048
     Dates: end: 20040312
  9. VALSARTAN [Concomitant]
     Indication: HYPERTENSION
     Dosage: 40MG PER DAY
     Route: 048
     Dates: end: 20040312
  10. SARPOGRELATE HYDROCHLORIDE [Concomitant]
     Dosage: 100MG PER DAY
     Route: 048
  11. CALCITRIOL [Concomitant]
     Indication: PARATHYROID DISORDER
     Dosage: .25UG PER DAY
     Route: 048
     Dates: end: 20040312
  12. CALCIUM POLYSTYRENE SULFONATE [Concomitant]
     Indication: HYPERKALAEMIA
     Dosage: 75G PER DAY
     Route: 048
     Dates: end: 20040312

REACTIONS (16)
  - ALANINE AMINOTRANSFERASE INCREASED [None]
  - ASPARTATE AMINOTRANSFERASE INCREASED [None]
  - BLOOD ALKALINE PHOSPHATASE INCREASED [None]
  - BLOOD BILIRUBIN INCREASED [None]
  - BLOOD CREATINE PHOSPHOKINASE INCREASED [None]
  - COUGH [None]
  - DEPRESSED LEVEL OF CONSCIOUSNESS [None]
  - DYSPNOEA [None]
  - HAEMODIALYSIS [None]
  - HEPATITIS FULMINANT [None]
  - HYPOGLYCAEMIA [None]
  - MALAISE [None]
  - PLATELET COUNT DECREASED [None]
  - PROTHROMBIN TIME PROLONGED [None]
  - PYREXIA [None]
  - SHOCK [None]
